FAERS Safety Report 7771907-2 (Version None)
Quarter: 2011Q3

REPORT INFORMATION
  Report Type: 
  Country: None (occurrence: None)
  Receive Date: 20110922
  Receipt Date: 20110614
  Transmission Date: 20111222
  Serious: No
  Sender: FDA-Public Use
  Company Number: US-ASTRAZENECA-2011SE36399

PATIENT
  Age: 58 Year
  Sex: Female
  Weight: 96.6 kg

DRUGS (5)
  1. CLONAZEPAM [Concomitant]
  2. SEROQUEL XR [Suspect]
     Route: 048
  3. METOPROLOL [Concomitant]
  4. SEROQUEL XR [Suspect]
     Indication: SLEEP APNOEA SYNDROME
     Route: 048
  5. SERTRALINE HYDROCHLORIDE [Concomitant]

REACTIONS (3)
  - SOMNAMBULISM [None]
  - OFF LABEL USE [None]
  - DRUG INEFFECTIVE FOR UNAPPROVED INDICATION [None]
